FAERS Safety Report 4560749-7 (Version None)
Quarter: 2005Q1

REPORT INFORMATION
  Report Type: 
  Country: None (occurrence: None)
  Receive Date: 20050124
  Receipt Date: 20050117
  Transmission Date: 20050727
  Serious: Yes (Life-Threatening, Hospitalization)
  Sender: FDA-Public Use
  Company Number: TCI2005A00057

PATIENT
  Age: 71 Year
  Sex: Female

DRUGS (4)
  1. ACTOS [Suspect]
     Indication: DIABETES MELLITUS NON-INSULIN-DEPENDENT
     Dosage: 30 MG (30 MG, 1 D)
     Route: 048
     Dates: start: 20040416, end: 20041015
  2. BASEN (VOGLIBOSE) [Concomitant]
  3. GLIMEPIRIDE [Concomitant]
  4. GLIBENCLAMIDE [Concomitant]

REACTIONS (6)
  - ACUTE MYOCARDIAL INFARCTION [None]
  - CEREBRAL INFARCTION [None]
  - DIABETES MELLITUS INADEQUATE CONTROL [None]
  - FALL [None]
  - PALPITATIONS [None]
  - WEIGHT INCREASED [None]
